FAERS Safety Report 5114681-0 (Version None)
Quarter: 2006Q3

REPORT INFORMATION
  Report Type: 
  Country: None (occurrence: None)
  Receive Date: 20060926
  Receipt Date: 20060914
  Transmission Date: 20061208
  Serious: Yes (Death, Other)
  Sender: FDA-Public Use
  Company Number: US-JNJFOC-20050606177

PATIENT
  Sex: Female

DRUGS (12)
  1. REMICADE [Suspect]
     Indication: RHEUMATOID ARTHRITIS
     Route: 042
  2. METHOTREXATE [Concomitant]
  3. TAMOXIFEN CITRATE [Concomitant]
  4. COZAAR [Concomitant]
  5. FOLIC ACID [Concomitant]
  6. ACTONEL [Concomitant]
  7. RANITIDINE [Concomitant]
  8. CALCIUM GLUCONATE [Concomitant]
  9. MULTI-VITAMIN [Concomitant]
  10. STOOL SOFTNER [Concomitant]
     Dosage: 3-4 TABS AT BEDTIME
  11. METAMUCIL [Concomitant]
     Dosage: 3-4 TABS DAILY
  12. EQUATE SLEEP AID [Concomitant]
     Dosage: AT BEDTIME.

REACTIONS (2)
  - NEOPLASM MALIGNANT [None]
  - PANCREATIC CARCINOMA [None]
